FAERS Safety Report 11983875 (Version 1)
Quarter: 2016Q1

REPORT INFORMATION
  Report Type: Spontaneous
  Country: US (occurrence: US)
  Receive Date: 20160201
  Receipt Date: 20160201
  Transmission Date: 20160526
  Serious: Yes (Hospitalization)
  Sender: FDA-Public Use
  Company Number: US-IPCA LABORATORIES LIMITED-IPC201601-000010

PATIENT
  Age: 65 Year
  Sex: Male
  Weight: 177 kg

DRUGS (15)
  1. ACETAMINOPHEN. [Concomitant]
     Active Substance: ACETAMINOPHEN
     Indication: ARTHRALGIA
  2. CODEINE [Concomitant]
     Active Substance: CODEINE
     Indication: ARTHRALGIA
     Route: 048
  3. CEFTAROLINE FOSAMIL [Suspect]
     Active Substance: CEFTAROLINE FOSAMIL
     Indication: ANTIBIOTIC THERAPY
     Route: 042
  4. METOPROLOL SUCCINATE. [Concomitant]
     Active Substance: METOPROLOL SUCCINATE
     Indication: HYPERTENSION
     Route: 048
  5. IPRATROPIUM BROMIDE. [Concomitant]
     Active Substance: IPRATROPIUM BROMIDE
     Indication: ASTHMA
     Dosage: 2 PUFFS
  6. WARFARIN [Suspect]
     Active Substance: WARFARIN
     Indication: THROMBOSIS PROPHYLAXIS
     Route: 048
  7. DILTIAZEM [Concomitant]
     Active Substance: DILTIAZEM
     Route: 048
  8. TOLTERODINE TARTRATE. [Concomitant]
     Active Substance: TOLTERODINE TARTRATE
     Indication: HYPERTONIC BLADDER
     Route: 048
  9. SILVER SULFADIAZINE. [Concomitant]
     Active Substance: SILVER SULFADIAZINE
     Indication: SKIN ULCER
  10. CADEXOMER IODINE [Concomitant]
     Active Substance: CADEXOMER IODINE
     Indication: SKIN ULCER
  11. WARFARIN [Suspect]
     Active Substance: WARFARIN
     Indication: DEEP VEIN THROMBOSIS
  12. ZINC SULFATE [Concomitant]
     Active Substance: ZINC SULFATE\ZINC SULFATE ANHYDROUS
     Indication: WOUND TREATMENT
     Route: 048
  13. VANCOMYCIN [Concomitant]
     Active Substance: VANCOMYCIN
     Indication: CELLULITIS
  14. WARFARIN [Suspect]
     Active Substance: WARFARIN
     Indication: PULMONARY EMBOLISM
  15. ASCORBIC ACID. [Concomitant]
     Active Substance: ASCORBIC ACID
     Indication: WOUND TREATMENT
     Route: 048

REACTIONS (6)
  - Drug interaction [Unknown]
  - Renal tubular necrosis [Unknown]
  - Acute kidney injury [Unknown]
  - International normalised ratio increased [Recovered/Resolved]
  - Prothrombin time prolonged [Unknown]
  - Hyperkalaemia [Unknown]
